FAERS Safety Report 5901685-0 (Version None)
Quarter: 2008Q3

REPORT INFORMATION
  Report Type: 
  Country: None (occurrence: None)
  Receive Date: 20080929
  Receipt Date: 20080923
  Transmission Date: 20090109
  Serious: Yes (Hospitalization)
  Sender: FDA-Public Use
  Company Number: A0748715A

PATIENT
  Age: 74 Year
  Sex: Female

DRUGS (3)
  1. LANOXIN [Suspect]
     Dosage: .25MG PER DAY
     Route: 048
     Dates: start: 20080502, end: 20080621
  2. DIOVAN [Concomitant]
  3. XANAX [Concomitant]

REACTIONS (3)
  - BLOOD PRESSURE INCREASED [None]
  - BRADYPHRENIA [None]
  - HEART RATE INCREASED [None]
